FAERS Safety Report 4942580-3 (Version None)
Quarter: 2006Q1

REPORT INFORMATION
  Report Type: 
  Country: None (occurrence: None)
  Receive Date: 20060308
  Receipt Date: 20060223
  Transmission Date: 20060701
  Serious: Yes (Other)
  Sender: FDA-Public Use
  Company Number: 2006US000417

PATIENT
  Age: 72 Year
  Sex: Male

DRUGS (2)
  1. PROTOPIC [Suspect]
     Indication: DERMATITIS PSORIASIFORM
  2. ALEFACEPT (ALEFACEPT) [Suspect]
     Indication: DERMATITIS PSORIASIFORM
     Dosage: 15 MG, WEEKLY
     Dates: start: 20031101

REACTIONS (1)
  - MYCOSIS FUNGOIDES [None]
